FAERS Safety Report 12540094 (Version 1)
Quarter: 2016Q3

REPORT INFORMATION
  Report Type: Spontaneous
  Country: US (occurrence: US)
  Receive Date: 20160708
  Receipt Date: 20160708
  Transmission Date: 20161109
  Serious: No
  Sender: FDA-Public Use
  Company Number: US-BEH-2016070368

PATIENT
  Sex: Female
  Weight: 108.84 kg

DRUGS (16)
  1. FLEXERIL [Concomitant]
     Active Substance: CYCLOBENZAPRINE HYDROCHLORIDE
  2. DIPHENHYDRAMINE. [Suspect]
     Active Substance: DIPHENHYDRAMINE
     Route: 065
  3. PROBIOTIC ACIDOPHILUS [Concomitant]
     Active Substance: LACTOBACILLUS ACIDOPHILUS
  4. OMEPRAZOLE. [Concomitant]
     Active Substance: OMEPRAZOLE
  5. TYLENOL EX-STR [Concomitant]
  6. LIDOCAINE/PRILOCAINE [Concomitant]
     Active Substance: LIDOCAINE\PRILOCAINE
  7. DOXYCYCLINE. [Concomitant]
     Active Substance: DOXYCYCLINE
  8. FLOVENT [Concomitant]
     Active Substance: FLUTICASONE PROPIONATE
  9. CEFTRIAXONE. [Concomitant]
     Active Substance: CEFTRIAXONE
  10. EPIPEN [Concomitant]
     Active Substance: EPINEPHRINE
  11. CIPRO [Concomitant]
     Active Substance: CIPROFLOXACIN HYDROCHLORIDE
  12. HIZENTRA [Suspect]
     Active Substance: HUMAN IMMUNOGLOBULIN G
     Indication: IMMUNODEFICIENCY COMMON VARIABLE
     Dosage: 16 G, QW
     Route: 058
  13. MULTIVITAMIN                       /00097801/ [Concomitant]
     Active Substance: VITAMINS
  14. AMLODIPINE AND ATORVASTATIN [Concomitant]
     Active Substance: AMLODIPINE BESYLATE\ATORVASTATIN CALCIUM TRIHYDRATE
  15. LISINOPRIL. [Concomitant]
     Active Substance: LISINOPRIL
  16. TRAMADOL. [Concomitant]
     Active Substance: TRAMADOL

REACTIONS (1)
  - Sinusitis [Unknown]
